FAERS Safety Report 9650020 (Version 1)
Quarter: 2013Q4

REPORT INFORMATION
  Report Type: Spontaneous
  Country: US (occurrence: US)
  Receive Date: 20131028
  Receipt Date: 20131028
  Transmission Date: 20140711
  Serious: No
  Sender: FDA-Public Use
  Company Number: US-PURDUE-USA-2012-0095380

PATIENT
  Age: 64 Year
  Sex: Male

DRUGS (1)
  1. OXYCODONE HCL CR TABLETS (SIMILAR TO NDA 22-272) [Suspect]
     Indication: OESOPHAGEAL SPASM
     Dosage: 10 MG, BID
     Route: 048
     Dates: start: 20121031

REACTIONS (1)
  - Drug ineffective [Not Recovered/Not Resolved]
